FAERS Safety Report 7120596-9 (Version None)
Quarter: 2010Q4

REPORT INFORMATION
  Report Type: 
  Country: None (occurrence: None)
  Receive Date: 20101122
  Receipt Date: 20101122
  Transmission Date: 20110411
  Serious: Yes (Disabling, Other)
  Sender: FDA-Public Use
  Company Number: None

PATIENT
  Sex: Female
  Weight: 74.3899 kg

DRUGS (1)
  1. VYTORIN [Suspect]
     Dosage: 1 EACH DAY

REACTIONS (10)
  - ANGINA PECTORIS [None]
  - BLINDNESS [None]
  - CARDIAC DISORDER [None]
  - DRUG LEVEL INCREASED [None]
  - LUNG DISORDER [None]
  - MALAISE [None]
  - MEMORY IMPAIRMENT [None]
  - OPTIC ISCHAEMIC NEUROPATHY [None]
  - RENAL DISORDER [None]
  - THROMBOSIS [None]
